FAERS Safety Report 21848290 (Version 3)
Quarter: 2023Q2

REPORT INFORMATION
  Report Type: Spontaneous
  Country: US (occurrence: US)
  Receive Date: 20230111
  Receipt Date: 20230411
  Transmission Date: 20230721
  Serious: Yes (Other)
  Sender: FDA-Public Use
  Company Number: US-PFIZER INC-2021716167

PATIENT
  Age: 82 Year
  Sex: Female

DRUGS (1)
  1. XELJANZ XR [Suspect]
     Active Substance: TOFACITINIB CITRATE
     Dosage: 11 MG

REACTIONS (6)
  - Dementia Alzheimer^s type [Unknown]
  - Dementia [Unknown]
  - Fall [Unknown]
  - Wrist fracture [Unknown]
  - Anxiety [Unknown]
  - Confusional state [Unknown]
